FAERS Safety Report 21701960 (Version 3)
Quarter: 2023Q1

REPORT INFORMATION
  Report Type: Spontaneous
  Country: US (occurrence: US)
  Receive Date: 20221208
  Receipt Date: 20230113
  Transmission Date: 20230418
  Serious: Yes (Hospitalization)
  Sender: FDA-Public Use
  Company Number: US-KARYOPHARM-2022KPT001497

PATIENT

DRUGS (7)
  1. XPOVIO [Suspect]
     Active Substance: SELINEXOR
     Indication: Plasma cell myeloma
     Dosage: 80 MG, WEEKLY
     Route: 048
     Dates: start: 20221105, end: 20221129
  2. XPOVIO [Suspect]
     Active Substance: SELINEXOR
     Dosage: 1 DOSAGE FORM, 2X/WEEK
     Route: 048
     Dates: start: 2023
  3. OLANZAPINE [Concomitant]
     Active Substance: OLANZAPINE
     Indication: Nausea
  4. ONDANSETRON [Concomitant]
     Active Substance: ONDANSETRON
     Indication: Nausea
  5. COMPAZINE [Concomitant]
     Active Substance: PROCHLORPERAZINE MALEATE
     Indication: Nausea
  6. EMEND [Concomitant]
     Active Substance: APREPITANT
     Indication: Nausea
  7. DEXAMETHASONE [Concomitant]
     Active Substance: DEXAMETHASONE

REACTIONS (8)
  - Pneumonia [Recovered/Resolved]
  - Tinnitus [Unknown]
  - Pain [Recovering/Resolving]
  - Hypersomnia [Recovering/Resolving]
  - Nausea [Not Recovered/Not Resolved]
  - Neutrophil count decreased [Unknown]
  - Fatigue [Unknown]
  - Product dose omission issue [Unknown]

NARRATIVE: CASE EVENT DATE: 20221101
